FAERS Safety Report 16820677 (Version 4)
Quarter: 2022Q2

REPORT INFORMATION
  Report Type: Other
  Country: US (occurrence: None)
  Receive Date: 20190918
  Receipt Date: 20220408
  Transmission Date: 20220721
  Serious: Yes (Hospitalization, Other)
  Sender: FDA-Public Use
  Company Number: US-ROCHE-2404672

PATIENT
  Age: 62 Year
  Sex: Female

DRUGS (2)
  1. OCREVUS [Suspect]
     Active Substance: OCRELIZUMAB
     Indication: Secondary progressive multiple sclerosis
     Dosage: SUBSEQUENT DOSE ON 05/JUL/2017, 03/JAN/2018, 12/JUL/2018, 18/JAN/2019, 10/OCT/2019, 18/APR/2019, 23/
     Route: 042
  2. OCREVUS [Suspect]
     Active Substance: OCRELIZUMAB
     Route: 042

REACTIONS (5)
  - Urinary tract infection [Unknown]
  - Multiple sclerosis [Unknown]
  - Off label use [Unknown]
  - Hyperlipidaemia [Unknown]
  - Off label use [Unknown]

NARRATIVE: CASE EVENT DATE: 20181001
